FAERS Safety Report 7318554-4 (Version None)
Quarter: 2011Q1

REPORT INFORMATION
  Report Type: 
  Country: None (occurrence: None)
  Receive Date: 20110228
  Receipt Date: 20110224
  Transmission Date: 20110831
  Serious: Yes (Other)
  Sender: FDA-Public Use
  Company Number: US-PFIZER INC-2011041045

PATIENT
  Sex: Female
  Weight: 95 kg

DRUGS (2)
  1. TOPROL-XL [Concomitant]
     Indication: HYPERTENSION
     Dosage: 25 MG, 1X/DAY
     Route: 048
     Dates: start: 20110111
  2. CHANTIX [Suspect]
     Indication: SMOKING CESSATION THERAPY
     Dosage: UNK
     Route: 048
     Dates: start: 20110118, end: 20110214

REACTIONS (4)
  - SUICIDAL IDEATION [None]
  - AGITATION [None]
  - NAUSEA [None]
  - DEPRESSION [None]
